FAERS Safety Report 14652440 (Version 1)
Quarter: 2018Q1

REPORT INFORMATION
  Report Type: Spontaneous
  Country: US (occurrence: US)
  Receive Date: 20180316
  Receipt Date: 20180316
  Transmission Date: 20180509
  Serious: Yes (Hospitalization)
  Sender: FDA-Public Use
  Company Number: None

PATIENT
  Age: 62 Year
  Sex: Male
  Weight: 96.7 kg

DRUGS (4)
  1. LEUCOVORIN CALCIUM. [Suspect]
     Active Substance: LEUCOVORIN CALCIUM
     Dates: end: 20180301
  2. ELOXATIN [Suspect]
     Active Substance: OXALIPLATIN
     Dates: end: 20180301
  3. 5-FLUOROURACIL (5-FU) [Suspect]
     Active Substance: FLUOROURACIL
     Dates: end: 20180301
  4. XELODA [Suspect]
     Active Substance: CAPECITABINE
     Dates: end: 20171005

REACTIONS (2)
  - Hepatic cyst [None]
  - Pyrexia [None]

NARRATIVE: CASE EVENT DATE: 20180307
